FAERS Safety Report 24742777 (Version 1)
Quarter: 2024Q4

REPORT INFORMATION
  Report Type: Spontaneous
  Country: BE (occurrence: BE)
  Receive Date: 20241217
  Receipt Date: 20241217
  Transmission Date: 20250115
  Serious: Yes (Life-Threatening, Hospitalization)
  Sender: PERRIGO
  Company Number: BE-MLMSERVICE-20241209-PI287144-00225-1

PATIENT
  Age: 24 Year
  Sex: Male

DRUGS (1)
  1. MINOXIDIL [Suspect]
     Active Substance: MINOXIDIL
     Indication: Intentional self-injury
     Dosage: 120 ML OF TOPICAL SOLUTION
     Route: 048

REACTIONS (7)
  - Shock [Recovered/Resolved]
  - Incorrect route of product administration [Recovered/Resolved]
  - Intentional overdose [Recovered/Resolved]
  - Metabolic acidosis [Unknown]
  - Respiratory alkalosis [Unknown]
  - Hyperlactacidaemia [Recovered/Resolved]
  - Intentional self-injury [Recovered/Resolved]
